FAERS Safety Report 6351291 (Version 4)
Quarter: 2020Q3

REPORT INFORMATION
  Report Type: Report from Study
  Country: JP (occurrence: JP)
  Receive Date: 20070706
  Receipt Date: 20090730
  Transmission Date: 20201105
  Serious: Yes (Death, Life-Threatening)
  Sender: FDA-Public Use
  Company Number: JP-JNJFOC-20070307063

PATIENT
  Age: 66 Year
  Sex: Male

DRUGS (17)
  1. SOLU?CORTEF [Concomitant]
     Active Substance: HYDROCORTISONE SODIUM SUCCINATE
     Route: 065
  2. SIVELESTAT [Concomitant]
     Active Substance: SIVELESTAT
     Route: 065
  3. CARBOCYSTEINE [Concomitant]
     Active Substance: CARBOCYSTEINE
     Route: 048
  4. FINIBAX [Suspect]
     Active Substance: DORIPENEM MONOHYDRATE
     Route: 041
  5. DOPAMINE HYDROCHLORIDE. [Concomitant]
     Active Substance: DOPAMINE HYDROCHLORIDE
     Route: 065
  6. PROPOFOL. [Concomitant]
     Active Substance: PROPOFOL
     Indication: PROPHYLAXIS
     Route: 065
  7. CEFOTIAM HYDROCHLORIDE [Concomitant]
     Active Substance: CEFOTIAM HYDROCHLORIDE
     Indication: SEPSIS
     Route: 065
  8. OMEPRAZOLE. [Concomitant]
     Active Substance: OMEPRAZOLE
     Route: 065
  9. FINIBAX [Suspect]
     Active Substance: DORIPENEM MONOHYDRATE
     Indication: SEPSIS
     Route: 041
  10. GASMOTIN [Concomitant]
     Route: 048
  11. MINOFIT [Concomitant]
     Indication: LIVER DISORDER
     Route: 065
  12. FINIBAX [Suspect]
     Active Substance: DORIPENEM MONOHYDRATE
     Dosage: TOTAL DOSE: 0.75 G
     Route: 041
  13. GLOVENIN [Concomitant]
     Indication: SEPSIS
     Route: 065
  14. MIRACLID [Concomitant]
     Route: 065
  15. NEUART [Concomitant]
     Route: 065
  16. NOREPINEPHRINE. [Concomitant]
     Active Substance: NOREPINEPHRINE
     Route: 065
  17. ZANTAC [Concomitant]
     Active Substance: RANITIDINE HYDROCHLORIDE
     Indication: PROPHYLAXIS
     Route: 065

REACTIONS (5)
  - Respiratory failure [Not Recovered/Not Resolved]
  - Sepsis [Fatal]
  - Liver disorder [Not Recovered/Not Resolved]
  - Platelet count decreased [Not Recovered/Not Resolved]
  - Renal impairment [Not Recovered/Not Resolved]

NARRATIVE: CASE EVENT DATE: 20070226
